FAERS Safety Report 13600608 (Version 1)
Quarter: 2017Q2

REPORT INFORMATION
  Report Type: Spontaneous
  Country: US (occurrence: US)
  Receive Date: 20170531
  Receipt Date: 20170531
  Transmission Date: 20170830
  Serious: No
  Sender: FDA-Public Use
  Company Number: None

PATIENT
  Age: 52 Year
  Sex: Male
  Weight: 104.3 kg

DRUGS (20)
  1. FLCYTOSINE [Concomitant]
  2. MAGNESIUM SULFATE. [Concomitant]
     Active Substance: MAGNESIUM SULFATE
  3. POTASSIUM CHLORIDE. [Concomitant]
     Active Substance: POTASSIUM CHLORIDE
  4. AMPHOTERICIN B LIPOSOME [Suspect]
     Active Substance: AMPHOTERICIN B
     Indication: MENINGITIS CRYPTOCOCCAL
     Route: 042
  5. AMLODIPINE [Concomitant]
     Active Substance: AMLODIPINE BESYLATE
  6. FEXOFENIDINE [Concomitant]
  7. ALBUMIN [Concomitant]
     Active Substance: ALBUMIN HUMAN
  8. FAMOTIDINE. [Concomitant]
     Active Substance: FAMOTIDINE
  9. FLUTICASONE. [Concomitant]
     Active Substance: FLUTICASONE
  10. INSULIN LISPRO [Concomitant]
     Active Substance: INSULIN LISPRO
  11. AMPICILLIN [Concomitant]
     Active Substance: AMPICILLIN
  12. MAG OXIDE [Concomitant]
     Active Substance: MAGNESIUM OXIDE
  13. CEFTRIAXONE. [Concomitant]
     Active Substance: CEFTRIAXONE
  14. EVEROLIMUS [Concomitant]
     Active Substance: EVEROLIMUS
  15. TAMSULOSIN [Concomitant]
     Active Substance: TAMSULOSIN
  16. VANCOMYCIN [Concomitant]
     Active Substance: VANCOMYCIN
  17. TACROLIMUS. [Concomitant]
     Active Substance: TACROLIMUS
  18. DIPHENHYDRAMINE. [Concomitant]
     Active Substance: DIPHENHYDRAMINE
  19. PREDNISONE. [Concomitant]
     Active Substance: PREDNISONE
  20. FLUCONAZOLE. [Concomitant]
     Active Substance: FLUCONAZOLE

REACTIONS (1)
  - Hypomagnesaemia [None]

NARRATIVE: CASE EVENT DATE: 20160405
